FAERS Safety Report 13948418 (Version 1)
Quarter: 2017Q3

REPORT INFORMATION
  Report Type: Spontaneous
  Country: US (occurrence: None)
  Receive Date: 20170907
  Receipt Date: 20170907
  Transmission Date: 20171128
  Serious: No
  Sender: FDA-Public Use
  Company Number: None

PATIENT
  Sex: Female

DRUGS (1)
  1. HUMIRA [Suspect]
     Active Substance: ADALIMUMAB
     Dosage: 160 MG ON DAY 1 AND 80 MG ON DAY 15
     Route: 058
     Dates: start: 20170727

REACTIONS (2)
  - Injection site pain [None]
  - Hyperaesthesia [None]
